FAERS Safety Report 6021834-6 (Version None)
Quarter: 2008Q4

REPORT INFORMATION
  Report Type: 
  Country: None (occurrence: None)
  Receive Date: 20081223
  Receipt Date: 20081209
  Transmission Date: 20090506
  Serious: Yes (Death)
  Sender: FDA-Public Use
  Company Number: KV200801043

PATIENT
  Age: 67 Year
  Sex: Male
  Weight: 83.9 kg

DRUGS (2)
  1. MORPHINE SULFATE [Suspect]
     Indication: INTERVERTEBRAL DISC DEGENERATION
     Dosage: 15 MG,EVERY 6 TO 8 HRS PRN, ORAL
     Route: 048
     Dates: end: 20080719
  2. INJECTIONS FOR PAIN NOS [Concomitant]

REACTIONS (3)
  - OVERDOSE [None]
  - PRODUCT QUALITY ISSUE [None]
  - ROAD TRAFFIC ACCIDENT [None]
